FAERS Safety Report 10445079 (Version 2)
Quarter: 2014Q4

REPORT INFORMATION
  Report Type: Spontaneous
  Country: US (occurrence: US)
  Receive Date: 20140910
  Receipt Date: 20141027
  Transmission Date: 20150528
  Serious: No
  Sender: FDA-Public Use
  Company Number: US-PFIZER INC-2014249738

PATIENT
  Age: 51 Year
  Sex: Female

DRUGS (5)
  1. XELJANZ [Suspect]
     Active Substance: TOFACITINIB CITRATE
     Dosage: 5 MG, DAILY
     Route: 048
  2. FLEXERIL [Concomitant]
     Active Substance: CYCLOBENZAPRINE HYDROCHLORIDE
     Indication: SPINAL OSTEOARTHRITIS
     Dosage: 10 MG, (QHS)
     Route: 048
     Dates: start: 20140730
  3. XELJANZ [Suspect]
     Active Substance: TOFACITINIB CITRATE
     Indication: RHEUMATOID ARTHRITIS
     Dosage: 5 MG, 2X/DAY
     Route: 048
     Dates: start: 20140522, end: 20140730
  4. NORCO [Concomitant]
     Active Substance: ACETAMINOPHEN\HYDROCODONE BITARTRATE
     Indication: RHEUMATOID ARTHRITIS
     Dosage: UNK(ACETAMINOPHEN 325 MG/HYDROCODONE 5 MG)
     Route: 048
     Dates: start: 20140611
  5. ALEVE SODIUM [Concomitant]
     Indication: RHEUMATOID ARTHRITIS
     Dosage: 220 MG, 2X/DAY
     Route: 048
     Dates: start: 20140522

REACTIONS (4)
  - Hunger [Not Recovered/Not Resolved]
  - Treatment noncompliance [Unknown]
  - Headache [Recovering/Resolving]
  - Dizziness [Not Recovered/Not Resolved]

NARRATIVE: CASE EVENT DATE: 201408
